FAERS Safety Report 17937447 (Version 1)
Quarter: 2020Q2

REPORT INFORMATION
  Report Type: Spontaneous
  Country: DE (occurrence: DE)
  Receive Date: 20200624
  Receipt Date: 20200624
  Transmission Date: 20200714
  Serious: Yes (Hospitalization)
  Sender: FDA-Public Use
  Company Number: DE-TEVA-2020-DE-1790479

PATIENT
  Age: 89 Year
  Sex: Female

DRUGS (11)
  1. HCT [Suspect]
     Active Substance: HYDROCHLOROTHIAZIDE
     Dosage: 25 MILLIGRAM DAILY; 1-0-0-0
  2. PANTOPRAZOL [Concomitant]
     Active Substance: PANTOPRAZOLE SODIUM
     Dosage: 40 MILLIGRAM DAILY;  1-0-1-0
  3. FUROSEMID [Suspect]
     Active Substance: FUROSEMIDE
     Dosage: 40 MG, 2-1-0-0
  4. CAPTOPRIL. [Concomitant]
     Active Substance: CAPTOPRIL
     Dosage: 25 MILLIGRAM DAILY; 1-0-0-0
  5. METAMIZOL [Concomitant]
     Active Substance: METAMIZOLE SODIUM
     Dosage: 500 MG, 1-1-1-2
  6. NALOXON/TILIDIN [Concomitant]
     Dosage: 4 DOSAGE FORMS DAILY; 4|50 MG, 2-0-2-0
  7. SPIOLTO RESPIMAT 2,5MIKROGRAMM/2,5MIKROGRAMM [Concomitant]
     Dosage: 2 DOSAGE FORMS DAILY; 2.5|2.5 MG/UG, 2-0-0-0
  8. MCP [Concomitant]
     Active Substance: METOCLOPRAMIDE HYDROCHLORIDE
     Dosage: 30 MILLIGRAM DAILY;  1-1-1-0
  9. AMLODIPIN [Concomitant]
     Active Substance: AMLODIPINE BESYLATE
     Dosage: 5 MILLIGRAM DAILY; 1-0-0-0
  10. LEVOTHYROXIN-NATRIUM [Concomitant]
     Active Substance: LEVOTHYROXINE SODIUM
     Dosage: 175 MICROGRAM DAILY;  1-0-0-0
  11. PROTAPHANE [Concomitant]
     Active Substance: INSULIN HUMAN
     Dosage: 30 IU (INTERNATIONAL UNIT) DAILY;  0-0-0-1

REACTIONS (11)
  - Fatigue [Unknown]
  - Dehydration [Unknown]
  - Nausea [Unknown]
  - Electrolyte imbalance [Unknown]
  - Product prescribing error [Unknown]
  - Vomiting [Unknown]
  - Diarrhoea [Unknown]
  - General physical health deterioration [Unknown]
  - Night sweats [Unknown]
  - Anaemia [Unknown]
  - Pallor [Unknown]
